FAERS Safety Report 9624904 (Version 1)
Quarter: 2013Q4

REPORT INFORMATION
  Report Type: Spontaneous
  Country: US (occurrence: US)
  Receive Date: 20131016
  Receipt Date: 20131016
  Transmission Date: 20140711
  Serious: No
  Sender: FDA-Public Use
  Company Number: US-B.I. PHARMACEUTICALS,INC./RIDGEFIELD-2013-BI-31257BP

PATIENT
  Age: 62 Year
  Sex: Female
  Weight: 77 kg

DRUGS (6)
  1. COMBIVENT [Suspect]
     Indication: PNEUMONIA
     Dosage: STRENGTH: 20 MCG / 100 MCG; DAILY DOSE: 240MCG/1200 MCG
     Route: 055
     Dates: start: 20131003
  2. PRAVASTATIN [Concomitant]
     Indication: BLOOD CHOLESTEROL INCREASED
     Dosage: 10 MG
     Route: 048
     Dates: start: 2012
  3. TYLENOL WITH CODIENE [Concomitant]
     Indication: ARTHRALGIA
     Dosage: STRENGTH: 30 MG/321 MG;
     Route: 048
     Dates: start: 1975
  4. TYLENOL WITH CODIENE [Concomitant]
     Indication: PAIN IN EXTREMITY
     Dosage: STRENGTH: 60 MG/325 MG;
     Route: 048
     Dates: start: 1975
  5. NAPROXEN [Concomitant]
     Indication: CARPAL TUNNEL SYNDROME
     Route: 048
     Dates: start: 2013
  6. NAPROXEN [Concomitant]
     Route: 048
     Dates: start: 2013

REACTIONS (4)
  - Nervousness [Not Recovered/Not Resolved]
  - Dizziness [Not Recovered/Not Resolved]
  - Overdose [Not Recovered/Not Resolved]
  - Off label use [Not Recovered/Not Resolved]
